FAERS Safety Report 6237649-X (Version None)
Quarter: 2009Q2

REPORT INFORMATION
  Report Type: 
  Country: None (occurrence: None)
  Receive Date: 20090619
  Receipt Date: 20090610
  Transmission Date: 20091009
  Serious: Yes (Disabling, Other)
  Sender: FDA-Public Use
  Company Number: US-MERCK-0708USA00293

PATIENT
  Age: 54 Year
  Sex: Female
  Weight: 58 kg

DRUGS (4)
  1. FOSAMAX [Suspect]
     Indication: OSTEOPOROSIS
     Route: 048
     Dates: start: 19990603, end: 20010301
  2. FOSAMAX [Suspect]
     Route: 048
     Dates: start: 20010321, end: 20051001
  3. FOSAMAX [Suspect]
     Indication: SCOLIOSIS
     Route: 048
     Dates: start: 19990603, end: 20010301
  4. FOSAMAX [Suspect]
     Route: 048
     Dates: start: 20010321, end: 20051001

REACTIONS (25)
  - ACNE [None]
  - ADVERSE EVENT [None]
  - BREAST DISORDER [None]
  - COUGH [None]
  - DEPRESSION [None]
  - DYSPNOEA [None]
  - EYE DISORDER [None]
  - HERPES SIMPLEX [None]
  - HERPES ZOSTER [None]
  - HYPERSENSITIVITY [None]
  - INFECTION [None]
  - INFLUENZA [None]
  - INSOMNIA [None]
  - NAUSEA [None]
  - OPEN WOUND [None]
  - OSTEONECROSIS [None]
  - PNEUMONIA [None]
  - RESORPTION BONE INCREASED [None]
  - ROTATOR CUFF SYNDROME [None]
  - SINUSITIS [None]
  - SQUAMOUS CELL CARCINOMA [None]
  - SYNOVIAL CYST [None]
  - TOOTH FRACTURE [None]
  - URINARY TRACT INFECTION [None]
  - VIRAL UPPER RESPIRATORY TRACT INFECTION [None]
